FAERS Safety Report 15440305 (Version 1)
Quarter: 2018Q3

REPORT INFORMATION
  Report Type: Spontaneous
  Country: US (occurrence: US)
  Receive Date: 20180928
  Receipt Date: 20180928
  Transmission Date: 20181010
  Serious: Yes (Other)
  Sender: FDA-Public Use
  Company Number: US-TARO-2018TAR00689

PATIENT
  Age: 64 Year
  Sex: Female

DRUGS (3)
  1. CARBAMAZEPINE ORAL SUSPENSION USP 100MG/5ML [Suspect]
     Active Substance: CARBAMAZEPINE
     Dosage: 300 MG, 1X/DAY AT 2 PM
     Route: 048
  2. CARBAMAZEPINE ORAL SUSPENSION USP 100MG/5ML [Suspect]
     Active Substance: CARBAMAZEPINE
     Indication: EPILEPSY
     Dosage: 500 MG, 1X/DAY AT 8 AM
     Route: 048
  3. CARBAMAZEPINE ORAL SUSPENSION USP 100MG/5ML [Suspect]
     Active Substance: CARBAMAZEPINE
     Dosage: 400 MG, 1X/DAY AT BEDTIME
     Route: 048

REACTIONS (3)
  - Seizure [Unknown]
  - Product quality issue [Not Recovered/Not Resolved]
  - Hypersomnia [Unknown]

NARRATIVE: CASE EVENT DATE: 20180918
